FAERS Safety Report 7579394-4 (Version None)
Quarter: 2011Q2

REPORT INFORMATION
  Report Type: 
  Country: None (occurrence: None)
  Receive Date: 20110629
  Receipt Date: 20110617
  Transmission Date: 20111010
  Serious: Yes (Hospitalization, Other)
  Sender: FDA-Public Use
  Company Number: DE-BIOGENIDEC-2011BI021192

PATIENT
  Age: 49 Year
  Sex: Female
  Weight: 60 kg

DRUGS (3)
  1. TYSABRI [Suspect]
     Indication: MULTIPLE SCLEROSIS
     Route: 042
     Dates: start: 20080328
  2. ZOPICLONE [Concomitant]
     Dates: start: 20070101
  3. PAROXETINE HCL [Concomitant]
     Dates: start: 20100101

REACTIONS (1)
  - OVARIAN CANCER [None]
